FAERS Safety Report 10391799 (Version 1)
Quarter: 2014Q3

REPORT INFORMATION
  Report Type: Spontaneous
  Country: CA (occurrence: CA)
  Receive Date: 20140819
  Receipt Date: 20140819
  Transmission Date: 20150326
  Serious: Yes (Death)
  Sender: FDA-Public Use
  Company Number: CA-MERCK-1408CAN009743

PATIENT
  Sex: Female

DRUGS (1)
  1. POSANOL [Suspect]
     Active Substance: POSACONAZOLE
     Indication: GRAFT VERSUS HOST DISEASE
     Dosage: 105ML/BOTTLE, 400 MG, BID
     Route: 048
     Dates: start: 20140326, end: 2014

REACTIONS (2)
  - Bone marrow transplant [Unknown]
  - Infection [Fatal]

NARRATIVE: CASE EVENT DATE: 2014
